FAERS Safety Report 4906316-4 (Version None)
Quarter: 2006Q1

REPORT INFORMATION
  Report Type: 
  Country: None (occurrence: None)
  Receive Date: 20060209
  Receipt Date: 20060131
  Transmission Date: 20060701
  Serious: Yes (Hospitalization, Other)
  Sender: FDA-Public Use
  Company Number: CA-JNJFOC-20050500175

PATIENT
  Sex: Female
  Weight: 41 kg

DRUGS (5)
  1. REMICADE [Suspect]
     Route: 042
  2. REMICADE [Suspect]
     Route: 042
  3. REMICADE [Suspect]
     Route: 042
  4. REMICADE [Suspect]
     Dosage: FIRST INFUSION
     Route: 042
  5. METHOTREXATE [Concomitant]

REACTIONS (7)
  - CLOSTRIDIAL INFECTION [None]
  - DEHYDRATION [None]
  - HYPOKINESIA [None]
  - PAIN IN EXTREMITY [None]
  - PNEUMONIA [None]
  - RENAL FAILURE ACUTE [None]
  - STOMACH DISCOMFORT [None]
